FAERS Safety Report 4995495-9 (Version None)
Quarter: 2006Q2

REPORT INFORMATION
  Report Type: 
  Country: None (occurrence: None)
  Receive Date: 20060504
  Receipt Date: 20060413
  Transmission Date: 20061013
  Serious: Yes (Other)
  Sender: FDA-Public Use
  Company Number: 200612348BWH

PATIENT

DRUGS (1)
  1. AVELOX [Suspect]
     Indication: PNEUMONIA
     Dosage: QD, INTRAVENOUS
     Route: 042
     Dates: start: 20060406, end: 20060410

REACTIONS (1)
  - IDIOPATHIC THROMBOCYTOPENIC PURPURA [None]
